FAERS Safety Report 17262146 (Version 2)
Quarter: 2020Q1

REPORT INFORMATION
  Report Type: Report from Study
  Country: US (occurrence: US)
  Receive Date: 20200113
  Receipt Date: 20200302
  Transmission Date: 20200409
  Serious: Yes (Death, Hospitalization)
  Sender: FDA-Public Use
  Company Number: US-KYOWAKIRIN-2020CKK000276

PATIENT

DRUGS (2)
  1. PEMBROLIZUMAB. [Suspect]
     Active Substance: PEMBROLIZUMAB
     Indication: LYMPHOMA
     Dosage: 200 MG, 1X/3 WEEKS
     Route: 042
     Dates: start: 20191126, end: 20191126
  2. MOGAMULIZUMAB [Suspect]
     Active Substance: MOGAMULIZUMAB
     Indication: LYMPHOMA
     Dosage: 1 MG/KG, 1X/WEEK
     Route: 042
     Dates: start: 20191126, end: 20191210

REACTIONS (2)
  - Acute kidney injury [Not Recovered/Not Resolved]
  - Disease progression [Fatal]

NARRATIVE: CASE EVENT DATE: 20191211
